FAERS Safety Report 9060359 (Version 2)
Quarter: 2013Q1

REPORT INFORMATION
  Report Type: Spontaneous
  Country: AU (occurrence: AU)
  Receive Date: 20130212
  Receipt Date: 20130222
  Transmission Date: 20140127
  Serious: No
  Sender: FDA-Public Use
  Company Number: AU-B.I. PHARMACEUTICALS,INC./RIDGEFIELD-2013-AU-00125AU

PATIENT
  Age: 67 None
  Sex: Male

DRUGS (3)
  1. PRADAXA [Suspect]
     Indication: ATRIAL FIBRILLATION
     Dosage: 300 MG
  2. ATACAND [Concomitant]
     Dosage: 32 MG
  3. ROSUVASTATIN [Concomitant]
     Dosage: 20 MG

REACTIONS (2)
  - Aphasia [Recovered/Resolved]
  - Paraesthesia [Recovered/Resolved]
